FAERS Safety Report 9580875 (Version 1)
Quarter: 2013Q4

REPORT INFORMATION
  Report Type: Spontaneous
  Country: US (occurrence: None)
  Receive Date: 20131001
  Receipt Date: 20131001
  Transmission Date: 20140711
  Serious: Yes (Hospitalization)
  Sender: FDA-Public Use
  Company Number: None

PATIENT
  Age: 11 Year
  Sex: Male
  Weight: 26.76 kg

DRUGS (1)
  1. NORDITROPIN FLEXPRO [Suspect]
     Indication: GROWTH HORMONE DEFICIENCY
     Dosage: 1.6 MG, AT BEDTIME, GIVEN INTO/ UNDER THE SKIN
     Dates: start: 20130301, end: 20130909

REACTIONS (1)
  - Pancreatitis [None]
